FAERS Safety Report 9668430 (Version 2)
Quarter: 2013Q4

REPORT INFORMATION
  Report Type: Spontaneous
  Country: BR (occurrence: BR)
  Receive Date: 20131105
  Receipt Date: 20131105
  Transmission Date: 20140711
  Serious: Yes (Other)
  Sender: FDA-Public Use
  Company Number: BR-PFIZER INC-2013263936

PATIENT
  Age: 52 Year
  Sex: Female
  Weight: 108 kg

DRUGS (3)
  1. CELEBRA [Suspect]
     Indication: ARTHRALGIA
     Dosage: 1 CAPSULE OF STRENGTH 200 MG, 2X/DAY EACH 12 HOURS
     Route: 048
     Dates: start: 20111026, end: 201111
  2. CELEBRA [Suspect]
     Dosage: UNK
     Dates: start: 20130909
  3. PIROXICAM [Concomitant]
     Dosage: UNK, 3X/DAY

REACTIONS (7)
  - Dysstasia [Not Recovered/Not Resolved]
  - Gait disturbance [Not Recovered/Not Resolved]
  - Pain [Unknown]
  - Pain in extremity [Unknown]
  - Drug ineffective [Not Recovered/Not Resolved]
  - Activities of daily living impaired [Not Recovered/Not Resolved]
  - Musculoskeletal pain [Unknown]
